FAERS Safety Report 5500532-9 (Version None)
Quarter: 2007Q4

REPORT INFORMATION
  Report Type: 
  Country: None (occurrence: None)
  Receive Date: 20071029
  Receipt Date: 20071017
  Transmission Date: 20080405
  Serious: Yes (Death, Life-Threatening, Hospitalization)
  Sender: FDA-Public Use
  Company Number: JP-AMGEN-US248270

PATIENT
  Age: 71 Year
  Sex: Female

DRUGS (3)
  1. ENBREL [Suspect]
     Indication: RHEUMATOID ARTHRITIS
     Route: 058
     Dates: start: 20070706, end: 20070925
  2. RISEDRONATE SODIUM [Concomitant]
     Route: 048
     Dates: start: 20070706, end: 20070925
  3. PREDONINE [Concomitant]
     Route: 048
     Dates: start: 20070706, end: 20070925

REACTIONS (2)
  - PHARYNGITIS [None]
  - PNEUMOCYSTIS JIROVECI PNEUMONIA [None]
